FAERS Safety Report 24677006 (Version 1)
Quarter: 2024Q4

REPORT INFORMATION
  Report Type: Spontaneous
  Country: US (occurrence: US)
  Receive Date: 20241128
  Receipt Date: 20241128
  Transmission Date: 20250114
  Serious: No
  Sender: STRIDES
  Company Number: US-STRIDES ARCOLAB LIMITED-2024SP002091

PATIENT
  Sex: Male
  Weight: 95.238 kg

DRUGS (6)
  1. IMIPRAMINE HYDROCHLORIDE [Suspect]
     Active Substance: IMIPRAMINE HYDROCHLORIDE
     Indication: Panic disorder
     Dosage: 11.5 MILLIGRAM; STRENGTH 25 MG; 11.5MG AND SOMETIME 15.5MG; TABLET
     Route: 048
  2. IMIPRAMINE HYDROCHLORIDE [Suspect]
     Active Substance: IMIPRAMINE HYDROCHLORIDE
     Dosage: 15.5 MILLIGRAM; STRENGTH 25 MG; 11.5MG AND SOMETIME 15.5MG; TABLET
     Route: 048
  3. IMIPRAMINE HYDROCHLORIDE [Suspect]
     Active Substance: IMIPRAMINE HYDROCHLORIDE
     Dosage: 10 MILLIGRAM, EVERY MORNING, (INCREASED TO 35MG STRENGTH); START DATE: 1985/1986; TABLET
     Route: 048
  4. IMIPRAMINE HYDROCHLORIDE [Suspect]
     Active Substance: IMIPRAMINE HYDROCHLORIDE
     Dosage: 25 MILLIGRAM, AT BED TIME, (INCREASED TO 35MG STRENGTH); START DATE: 1985/1986; TABLET
     Route: 048
  5. ASPIRIN [Concomitant]
     Active Substance: ASPIRIN
     Indication: Arthritis
     Dosage: UNK
     Route: 065
  6. DICLOFENAC [Concomitant]
     Active Substance: DICLOFENAC
     Indication: Arthritis
     Dosage: UNK
     Route: 065

REACTIONS (2)
  - Drug ineffective for unapproved indication [Unknown]
  - Wrong technique in product usage process [Unknown]
